FAERS Safety Report 10377543 (Version 1)
Quarter: 2014Q3

REPORT INFORMATION
  Report Type: Spontaneous
  Country: US (occurrence: US)
  Receive Date: 20140812
  Receipt Date: 20140812
  Transmission Date: 20150326
  Serious: No
  Sender: FDA-Public Use
  Company Number: US-009507513-1408USA005252

PATIENT
  Age: 71 Year
  Sex: Female

DRUGS (3)
  1. HUMALOG [Concomitant]
     Active Substance: INSULIN LISPRO
  2. JANUVIA [Suspect]
     Active Substance: SITAGLIPTIN PHOSPHATE
     Indication: DIABETES MELLITUS
     Dosage: 100 MG, QD
     Route: 048
     Dates: start: 2012
  3. LANTUS [Concomitant]
     Active Substance: INSULIN GLARGINE

REACTIONS (8)
  - Mobility decreased [Unknown]
  - Weight loss poor [Unknown]
  - Poor quality sleep [Unknown]
  - Sleep apnoea syndrome [Unknown]
  - Insomnia [Unknown]
  - Drug ineffective [Unknown]
  - Arthropathy [Unknown]
  - Depressed mood [Unknown]
